FAERS Safety Report 6718331-9 (Version None)
Quarter: 2010Q2

REPORT INFORMATION
  Report Type: 
  Country: None (occurrence: None)
  Receive Date: 20100505
  Receipt Date: 20100422
  Transmission Date: 20101027
  Serious: Yes (Other)
  Sender: FDA-Public Use
  Company Number: 167-20484-09111576

PATIENT
  Sex: Female
  Weight: 1.69 kg

DRUGS (10)
  1. INNOHEP [Suspect]
     Indication: DRUG EXPOSURE DURING PREGNANCY
     Dosage: TRANSPLACENTAL
     Route: 064
     Dates: start: 20071127, end: 20080506
  2. BETAMETHASONE [Concomitant]
  3. DIAMORPHINE (DIAMORPHINE) [Concomitant]
  4. MARCAINE (BUPIVACINE) [Concomitant]
  5. SYNTOCINON [Concomitant]
  6. CEFUROXIME [Concomitant]
  7. DICLOFENAC SODIUM [Concomitant]
  8. METRONIDAZOLE [Concomitant]
  9. ACETAMINOPHEN [Concomitant]
  10. CODEINE SUL TAB [Concomitant]

REACTIONS (3)
  - CAESAREAN SECTION [None]
  - MATERNAL DRUGS AFFECTING FOETUS [None]
  - PREMATURE BABY [None]
